FAERS Safety Report 16198963 (Version 1)
Quarter: 2019Q2

REPORT INFORMATION
  Report Type: Spontaneous
  Country: GB (occurrence: GB)
  Receive Date: 20190415
  Receipt Date: 20190415
  Transmission Date: 20190711
  Serious: Yes (Other)
  Sender: FDA-Public Use
  Company Number: GB-MYLANLABS-2019M1035165

PATIENT
  Age: 64 Year
  Sex: Female
  Weight: 128 kg

DRUGS (4)
  1. CITALOPRAM [Suspect]
     Active Substance: CITALOPRAM HYDROBROMIDE
     Indication: PRODUCT USED FOR UNKNOWN INDICATION
     Dosage: ONE TABLET ON MON, WEDS, FRI AND TWO TABLETS ON...
     Dates: start: 20181025
  2. WARFARIN SODIUM. [Concomitant]
     Active Substance: WARFARIN SODIUM
     Indication: ANTICOAGULANT THERAPY
     Dosage: TAKE AS DIRECTED BY INR CLINIC (FOR BLOOD THINN...
     Dates: start: 20180501, end: 20181025
  3. FERROUS SULFATE. [Concomitant]
     Active Substance: FERROUS SULFATE
     Indication: IRON DEFICIENCY
     Dosage: 2 DOSAGE FORM, QD
     Dates: start: 20181025
  4. CITALOPRAM [Concomitant]
     Active Substance: CITALOPRAM HYDROBROMIDE
     Dosage: ONE TABLET ON MON, WEDS, FRI AND TWO TABLETS ON...
     Dates: start: 20180403, end: 20181025

REACTIONS (5)
  - Pain [Unknown]
  - Feeling abnormal [Recovering/Resolving]
  - Withdrawal syndrome [Unknown]
  - Hypoaesthesia [Recovering/Resolving]
  - Fatigue [Recovering/Resolving]

NARRATIVE: CASE EVENT DATE: 20181025
